FAERS Safety Report 14804492 (Version 2)
Quarter: 2022Q2

REPORT INFORMATION
  Report Type: Spontaneous
  Country: US (occurrence: US)
  Receive Date: 20180425
  Receipt Date: 20220426
  Transmission Date: 20220720
  Serious: No
  Sender: FDA-Public Use
  Company Number: US-TEVA-2018-US-870586

PATIENT

DRUGS (2)
  1. TAXOTERE [Suspect]
     Active Substance: DOCETAXEL
     Dosage: DOSAGE 125-160 MG, EVERY THREE WEEKS, NUMBER OF CYCLES: 4
     Route: 065
     Dates: start: 20131119, end: 20140128
  2. CYTOXAN [Suspect]
     Active Substance: CYCLOPHOSPHAMIDE
     Dosage: 1000-1260 MG, EVERY THREE WEEKS, NUMBER OF CYCLES: 4
     Route: 065
     Dates: start: 20131119, end: 20140128

REACTIONS (2)
  - Alopecia [Unknown]
  - Alopecia [Unknown]
